FAERS Safety Report 6403263-6 (Version None)
Quarter: 2009Q4

REPORT INFORMATION
  Report Type: 
  Country: None (occurrence: None)
  Receive Date: 20091013
  Receipt Date: 20091002
  Transmission Date: 20100525
  Serious: Yes (Other)
  Sender: FDA-Public Use
  Company Number: GXKR2009JP10918

PATIENT
  Age: 7 Month

DRUGS (4)
  1. ASPIRIN [Suspect]
     Indication: CORONARY ARTERY ANEURYSM
     Dosage: 3-5 MG/KG
  2. ASPIRIN [Suspect]
     Indication: KAWASAKI'S DISEASE
     Dosage: 3-5 MG/KG
  3. WARFARIN SODIUM [Suspect]
     Indication: CORONARY ARTERY ANEURYSM
  4. WARFARIN SODIUM [Suspect]
     Indication: KAWASAKI'S DISEASE

REACTIONS (2)
  - EXTRADURAL HAEMATOMA [None]
  - FALL [None]
